FAERS Safety Report 8120601-7 (Version None)
Quarter: 2012Q1

REPORT INFORMATION
  Report Type: 
  Country: None (occurrence: None)
  Receive Date: 20120207
  Receipt Date: 20120201
  Transmission Date: 20120608
  Serious: Yes (Other)
  Sender: FDA-Public Use
  Company Number: US-PFIZER INC-2012029964

PATIENT
  Sex: Female
  Weight: 56.7 kg

DRUGS (1)
  1. ETHINYL ESTRADIOL AND NORGESTREL [Suspect]
     Indication: CONTRACEPTION
     Dosage: UNK
     Route: 048
     Dates: start: 20110201

REACTIONS (8)
  - MENSTRUAL DISORDER [None]
  - POLYMENORRHOEA [None]
  - DYSMENORRHOEA [None]
  - UNINTENDED PREGNANCY [None]
  - METRORRHAGIA [None]
  - DRUG INEFFECTIVE [None]
  - HORMONE LEVEL ABNORMAL [None]
  - ABORTION SPONTANEOUS [None]
